FAERS Safety Report 14683258 (Version 1)
Quarter: 2018Q1

REPORT INFORMATION
  Report Type: Spontaneous
  Country: FR (occurrence: FR)
  Receive Date: 20180327
  Receipt Date: 20180327
  Transmission Date: 20180509
  Serious: Yes (Hospitalization)
  Sender: FDA-Public Use
  Company Number: FR-ASTRAZENECA-2018SE36318

PATIENT
  Age: 55 Year
  Sex: Female

DRUGS (2)
  1. FASLODEX [Suspect]
     Active Substance: FULVESTRANT
     Dosage: 250 MG/5 ML, SOLUTION INJECTABLE
     Route: 030
     Dates: start: 201711, end: 201712
  2. AFINITOR [Suspect]
     Active Substance: EVEROLIMUS
     Dosage: 5.0MG UNKNOWN
     Route: 048
     Dates: start: 20170510, end: 20171114

REACTIONS (1)
  - Interstitial lung disease [Recovered/Resolved]

NARRATIVE: CASE EVENT DATE: 20171110
